FAERS Safety Report 5385898-5 (Version None)
Quarter: 2007Q3

REPORT INFORMATION
  Report Type: 
  Country: None (occurrence: None)
  Receive Date: 20070712
  Receipt Date: 20070623
  Transmission Date: 20080115
  Serious: Yes (Hospitalization, Disabling)
  Sender: FDA-Public Use
  Company Number: PHBS2007CN10620

PATIENT
  Age: 30 Year
  Sex: Female

DRUGS (3)
  1. ZOMETA [Suspect]
     Dosage: 4 MG, UNK
     Route: 042
     Dates: start: 20060901, end: 20070201
  2. DOCETAXEL [Suspect]
     Indication: BREAST CANCER
  3. PIRARUBICIN [Concomitant]
     Indication: BREAST CANCER

REACTIONS (6)
  - ACTIVITIES OF DAILY LIVING IMPAIRED [None]
  - BREAST CANCER [None]
  - BREAST OPERATION [None]
  - METASTASES TO LYMPH NODES [None]
  - MYALGIA [None]
  - OSTEOARTHRITIS [None]
